FAERS Safety Report 4639707-X (Version None)
Quarter: 2005Q2

REPORT INFORMATION
  Report Type: 
  Country: None (occurrence: None)
  Receive Date: 20050418
  Receipt Date: 20050405
  Transmission Date: 20051028
  Serious: Yes (Other)
  Sender: FDA-Public Use
  Company Number: 2005050924

PATIENT
  Age: 54 Year
  Sex: Male

DRUGS (9)
  1. LIPITOR [Suspect]
     Indication: HYPERLIPIDAEMIA
     Dosage: 10 MG (10 MG, 1IN 1D), ORAL
     Route: 048
     Dates: start: 20040224, end: 20050216
  2. BROMPERIDOL            (BROMPERIDOL) [Suspect]
     Indication: ILL-DEFINED DISORDER
     Dosage: 3 MG (1 MG, 3 IN 1D), ORAL
     Route: 048
  3. BIPERIDEN HYDROCHLORIDE TAB [Suspect]
     Indication: ILL-DEFINED DISORDER
     Dosage: 3 MG (1 MG, 3 IN 1 D), ORAL
     Route: 048
  4. ETIZOLAM               (ETIZOLAM) [Suspect]
     Indication: ILL-DEFINED DISORDER
     Dosage: 2 MG (1 MG, 2 IN 1 D), ORAL
     Route: 048
  5. FLUNITRAZEPAM                    (FLUNITRAZEPAM) [Suspect]
     Indication: ILL-DEFINED DISORDER
     Dosage: 2 MG (2 MG, 1 IN 1 D), ORAL
     Route: 048
  6. PENTOBARBITAL CALCIUM                    (PENTOBARBITAL CALCIUM) [Suspect]
     Indication: ILL-DEFINED DISORDER
     Dosage: 50 MG (50 MG, 1 IN 1D),ORAL
     Route: 048
  7. VEGETAMIN (CHLORPROMAZINE HYDROCHLORIDE PHENOBARBITAL, PROMETHAZINE HY [Concomitant]
  8. CARBAMAZEPINE [Concomitant]
  9. VALPROATE SODIUM [Concomitant]

REACTIONS (3)
  - GLAUCOMA [None]
  - HYPOGAMMAGLOBULINAEMIA [None]
  - SCHIZOPHRENIA [None]
